FAERS Safety Report 4989708-7 (Version None)
Quarter: 2006Q2

REPORT INFORMATION
  Report Type: 
  Country: None (occurrence: None)
  Receive Date: 20060501
  Receipt Date: 20060424
  Transmission Date: 20061013
  Serious: Yes (Hospitalization)
  Sender: FDA-Public Use
  Company Number: SU-2006-004868

PATIENT
  Age: 61 Year
  Sex: Female

DRUGS (7)
  1. BENICAR [Suspect]
     Indication: BLOOD PRESSURE
     Dosage: 5 MG QD PO
     Route: 048
     Dates: start: 20060105, end: 20060407
  2. VERAPAMIL [Concomitant]
  3. HYDROCHLOROTHIAZIDE [Concomitant]
  4. SYNTHROID [Concomitant]
  5. ASPIRIN [Concomitant]
  6. MULTIVITAMIN [Concomitant]
  7. ASCORBIC ACID [Concomitant]

REACTIONS (4)
  - COLONIC POLYP [None]
  - DYSPNOEA [None]
  - INTESTINAL FUNCTIONAL DISORDER [None]
  - MYALGIA [None]
